FAERS Safety Report 7803431-2 (Version None)
Quarter: 2011Q4

REPORT INFORMATION
  Report Type: 
  Country: None (occurrence: None)
  Receive Date: 20111007
  Receipt Date: 20111003
  Transmission Date: 20120403
  Serious: Yes (Life-Threatening)
  Sender: FDA-Public Use
  Company Number: FR-ASTRAZENECA-2011SE59156

PATIENT
  Age: 874 Month
  Sex: Male

DRUGS (11)
  1. CRESTOR [Suspect]
     Route: 048
     Dates: start: 20110819, end: 20110911
  2. ACETAMINOPHEN [Suspect]
     Route: 065
     Dates: start: 20110808, end: 20110919
  3. SECTRAL [Concomitant]
     Dates: start: 20110808
  4. LEXOMIL [Concomitant]
     Dates: start: 20110819, end: 20110912
  5. VANCOMYCIN [Concomitant]
     Dates: start: 20110819, end: 20110828
  6. NEXIUM [Suspect]
     Route: 048
     Dates: start: 20110819, end: 20110914
  7. ALLOPURINOL [Suspect]
     Route: 048
     Dates: start: 20070101, end: 20110806
  8. TRAMADOL HCL [Suspect]
     Route: 048
     Dates: start: 20110819, end: 20110912
  9. OFLOXACIN [Concomitant]
     Dates: start: 20110819, end: 20110828
  10. AMLODIPINE BESYLATE [Suspect]
     Route: 048
     Dates: start: 20110808, end: 20110912
  11. ALLOPURINOL [Suspect]
     Route: 048
     Dates: start: 20110819, end: 20110911

REACTIONS (1)
  - DRUG RASH WITH EOSINOPHILIA AND SYSTEMIC SYMPTOMS [None]
